FAERS Safety Report 8171101 (Version 3)
Quarter: 2013Q2

REPORT INFORMATION
  Report Type: Spontaneous
  Country: US (occurrence: US)
  Receive Date: 20111006
  Receipt Date: 20130507
  Transmission Date: 20140414
  Serious: Yes (Other)
  Sender: FDA-Public Use
  Company Number: US-ROCHE-784149

PATIENT
  Age: 34 Year
  Sex: Male
  Weight: 81.72 kg

DRUGS (4)
  1. ACCUTANE [Suspect]
     Indication: ACNE
     Route: 048
     Dates: start: 20001229, end: 20010810
  2. ACCUTANE [Suspect]
     Dosage: DOSES: 40 MG, 60 MG
     Route: 048
     Dates: start: 20011203, end: 2002
  3. ACCUTANE [Suspect]
     Route: 048
     Dates: start: 20031001, end: 20050415
  4. ACCUTANE [Suspect]
     Dosage: DOSES: 40 MG DAILY, 40 MG, EVERY OTHER DAY AND 40 MG 2/3 WEEKS
     Route: 048
     Dates: start: 20050608, end: 2007

REACTIONS (5)
  - Colitis ulcerative [Unknown]
  - Inflammatory bowel disease [Unknown]
  - Haemorrhoids [Unknown]
  - Stress [Unknown]
  - Herpes simplex [Unknown]
